FAERS Safety Report 7304796-0 (Version None)
Quarter: 2011Q1

REPORT INFORMATION
  Report Type: 
  Country: None (occurrence: None)
  Receive Date: 20110222
  Receipt Date: 20110209
  Transmission Date: 20110831
  Serious: No
  Sender: FDA-Public Use
  Company Number: US-PFIZER INC-US-WYE-H16042710

PATIENT
  Sex: Female
  Weight: 49.9 kg

DRUGS (3)
  1. PRISTIQ [Suspect]
     Indication: ANXIETY
     Dosage: 50 MG, 1X/DAY
     Route: 048
     Dates: start: 20100417
  2. PRISTIQ [Suspect]
     Indication: DEPRESSION
  3. ATIVAN [Concomitant]

REACTIONS (3)
  - ACCIDENTAL OVERDOSE [None]
  - MOOD SWINGS [None]
  - NAUSEA [None]
